FAERS Safety Report 8999403 (Version 2)
Quarter: 2013Q1

REPORT INFORMATION
  Report Type: Spontaneous
  Country: US (occurrence: US)
  Receive Date: 20130103
  Receipt Date: 20130109
  Transmission Date: 20140127
  Serious: No
  Sender: FDA-Public Use
  Company Number: US-009507513-1212USA011327

PATIENT
  Sex: Female

DRUGS (4)
  1. VICTRELIS [Suspect]
     Indication: CHRONIC HEPATITIS C
     Dosage: 800 MG, TID
     Route: 048
     Dates: start: 20120726, end: 20121211
  2. PEGINTRON [Suspect]
     Dosage: UNK
  3. RIBAPAK [Suspect]
     Dosage: UNK
  4. HUMIRA [Concomitant]

REACTIONS (3)
  - Syncope [Unknown]
  - Headache [Unknown]
  - Fatigue [Unknown]
